FAERS Safety Report 7100096-2 (Version None)
Quarter: 2010Q4

REPORT INFORMATION
  Report Type: 
  Country: None (occurrence: None)
  Receive Date: 20101112
  Receipt Date: 20091203
  Transmission Date: 20110411
  Serious: No
  Sender: FDA-Public Use
  Company Number: A0833192A

PATIENT
  Age: 61 Year
  Sex: Female

DRUGS (5)
  1. COREG [Suspect]
     Indication: HYPERTENSION
     Dosage: 25MG TWICE PER DAY
     Route: 048
     Dates: start: 20091201
  2. UNKNOWN MEDICATION [Concomitant]
  3. VITAMIN B [Concomitant]
  4. VITAMIN D [Concomitant]
  5. CALCIUM [Concomitant]

REACTIONS (1)
  - BLOOD PRESSURE FLUCTUATION [None]
